FAERS Safety Report 13740160 (Version 2)
Quarter: 2017Q3

REPORT INFORMATION
  Report Type: Spontaneous
  Country: US (occurrence: US)
  Receive Date: 20170711
  Receipt Date: 20170818
  Transmission Date: 20171127
  Serious: No
  Sender: FDA-Public Use
  Company Number: US-ALEXION PHARMACEUTICALS INC.-A201707710

PATIENT
  Sex: Female

DRUGS (2)
  1. STRENSIQ [Suspect]
     Active Substance: ASFOTASE ALFA
     Dosage: 2 MG/KG, TIW
     Route: 058
  2. STRENSIQ [Suspect]
     Active Substance: ASFOTASE ALFA
     Indication: HYPOPHOSPHATASIA
     Dosage: 2 MG/KG, TIW
     Route: 058

REACTIONS (6)
  - Injection site erythema [Unknown]
  - Injection site warmth [Unknown]
  - Injection site pain [Not Recovered/Not Resolved]
  - Injection site induration [Unknown]
  - Injection site swelling [Recovered/Resolved]
  - Injection site mass [Unknown]

NARRATIVE: CASE EVENT DATE: 20170701
